FAERS Safety Report 4831708-1 (Version None)
Quarter: 2005Q4

REPORT INFORMATION
  Report Type: 
  Country: None (occurrence: None)
  Receive Date: 20051116
  Receipt Date: 20051103
  Transmission Date: 20060501
  Serious: Yes (Other)
  Sender: FDA-Public Use
  Company Number: 2005054417

PATIENT
  Age: 69 Year
  Sex: Female

DRUGS (7)
  1. GABAPENTIN [Suspect]
     Indication: ILL-DEFINED DISORDER
     Dosage: 200 MG
  2. LYRICA [Suspect]
     Indication: BACK PAIN
     Dosage: ORAL
     Route: 048
     Dates: start: 20050304, end: 20050306
  3. MORPHINE SULFATE [Concomitant]
  4. ORAMORPH SR [Concomitant]
  5. CALCICHEW (CALCIUM CARBONATE) [Concomitant]
  6. NAPROXEN [Concomitant]
  7. OMEPRAZOLE [Suspect]

REACTIONS (6)
  - CONTUSION [None]
  - OEDEMA PERIPHERAL [None]
  - RASH MACULAR [None]
  - VASODILATATION [None]
  - VEIN DISORDER [None]
  - VOMITING [None]
